FAERS Safety Report 8444121 (Version 2)
Quarter: 2014Q2

REPORT INFORMATION
  Report Type: Spontaneous
  Country: US (occurrence: US)
  Receive Date: 20120307
  Receipt Date: 20140619
  Transmission Date: 20141212
  Serious: Yes (Other)
  Sender: FDA-Public Use
  Company Number: US-RANBAXY-2012US-53502

PATIENT
  Sex: Female

DRUGS (6)
  1. LAMOTRIGINE [Suspect]
     Indication: EPILEPSY
     Dosage: UNK
     Route: 065
  2. LAMOTRIGINE [Suspect]
     Indication: AFFECTIVE DISORDER
  3. TOPIRAMATE [Suspect]
     Indication: EPILEPSY
     Dosage: UNK
     Route: 065
  4. TOPIRAMATE [Suspect]
     Indication: AFFECTIVE DISORDER
  5. PHENYTOIN [Suspect]
     Indication: EPILEPSY
     Dosage: UNK
     Route: 065
  6. PHENYTOIN [Suspect]
     Indication: AFFECTIVE DISORDER

REACTIONS (3)
  - Exposure during pregnancy [Recovered/Resolved]
  - Congenital anomaly in offspring [Unknown]
  - Pregnancy [Recovered/Resolved]
